FAERS Safety Report 6578201-6 (Version None)
Quarter: 2010Q1

REPORT INFORMATION
  Report Type: 
  Country: None (occurrence: None)
  Receive Date: 20100211
  Receipt Date: 20100209
  Transmission Date: 20100710
  Serious: Yes (Other)
  Sender: FDA-Public Use
  Company Number: IT-ROXANE LABORATORIES, INC.-2010-RO-00144RO

PATIENT
  Age: 36 Year
  Sex: Female

DRUGS (4)
  1. LORAZEPAM [Suspect]
     Indication: DEPRESSION
  2. TOPIRAMATE [Suspect]
     Indication: MIGRAINE WITHOUT AURA
     Dosage: 25 MG
  3. TOPIRAMATE [Suspect]
     Dosage: 100 MG
  4. FLUOXETINE [Suspect]
     Indication: DEPRESSION

REACTIONS (1)
  - EPISTAXIS [None]
